FAERS Safety Report 26041537 (Version 1)
Quarter: 2025Q4

REPORT INFORMATION
  Report Type: Spontaneous
  Country: GB (occurrence: GB)
  Receive Date: 20251113
  Receipt Date: 20251113
  Transmission Date: 20260117
  Serious: Yes (Death)
  Sender: PFIZER
  Company Number: GB-PFIZER INC-202500221059

PATIENT
  Sex: Female

DRUGS (1)
  1. MISOPROSTOL [Suspect]
     Active Substance: MISOPROSTOL
     Indication: Labour induction
     Dosage: GIVEN EIGHT TIMES THE RECOMMENDED DOSE
     Route: 064

REACTIONS (2)
  - Maternal exposure during pregnancy [Fatal]
  - Stillbirth [Fatal]
